FAERS Safety Report 13541929 (Version 1)
Quarter: 2017Q2

REPORT INFORMATION
  Report Type: Spontaneous
  Country: US (occurrence: US)
  Receive Date: 20170512
  Receipt Date: 20170512
  Transmission Date: 20170830
  Serious: Yes (Death, Life-Threatening, Hospitalization, Other)
  Sender: FDA-Public Use
  Company Number: US-BAYER-2017-089052

PATIENT
  Age: 49 Year
  Sex: Male

DRUGS (4)
  1. PARACETAMOL [Suspect]
     Active Substance: ACETAMINOPHEN
     Dosage: 40 DF, UNK
  2. ACETYLSALICYLIC ACID({=100 MG) [Suspect]
     Active Substance: ASPIRIN
     Dosage: UNK
  3. HYDROCODONE [Suspect]
     Active Substance: HYDROCODONE
     Dosage: 40 DF, UNK
  4. MELATONIN [Suspect]
     Active Substance: MELATONIN
     Dosage: UNK

REACTIONS (10)
  - Seizure [Fatal]
  - Confusional state [Fatal]
  - Cardiac arrest [Fatal]
  - Tachycardia [Fatal]
  - Tachypnoea [Fatal]
  - Aspartate aminotransferase increased [Fatal]
  - Toxicity to various agents [Fatal]
  - Agitation [Fatal]
  - Alanine aminotransferase increased [Fatal]
  - Intentional overdose [Fatal]
